FAERS Safety Report 15687473 (Version 5)
Quarter: 2019Q1

REPORT INFORMATION
  Report Type: Report from Study
  Country: JP (occurrence: JP)
  Receive Date: 20181205
  Receipt Date: 20190122
  Transmission Date: 20190417
  Serious: Yes (Death)
  Sender: FDA-Public Use
  Company Number: JP-ROCHE-2224916

PATIENT
  Age: 61 Year
  Sex: Male
  Weight: 53 kg

DRUGS (1)
  1. ATEZOLIZUMAB. [Suspect]
     Active Substance: ATEZOLIZUMAB
     Indication: LUNG ADENOCARCINOMA
     Route: 041
     Dates: start: 20181109, end: 20181109

REACTIONS (4)
  - Non-cardiogenic pulmonary oedema [Fatal]
  - Interstitial lung disease [Fatal]
  - Renal disorder [Fatal]
  - Platelet count decreased [Fatal]

NARRATIVE: CASE EVENT DATE: 20181120
